FAERS Safety Report 8589993-9 (Version None)
Quarter: 2012Q3

REPORT INFORMATION
  Report Type: 
  Country: None (occurrence: None)
  Receive Date: 20120813
  Receipt Date: 20120731
  Transmission Date: 20120928
  Serious: Yes (Hospitalization, Other)
  Sender: FDA-Public Use
  Company Number: GB-ELI_LILLY_AND_COMPANY-GB201206009588

PATIENT
  Sex: Male

DRUGS (1)
  1. HUMULIN 70/30 [Suspect]
     Dosage: UNK, UNKNOWN

REACTIONS (4)
  - RETINOPATHY [None]
  - VISION BLURRED [None]
  - DRUG EFFECT DECREASED [None]
  - CEREBROVASCULAR ACCIDENT [None]
